FAERS Safety Report 6555265-7 (Version None)
Quarter: 2010Q1

REPORT INFORMATION
  Report Type: 
  Country: None (occurrence: None)
  Receive Date: 20100128
  Receipt Date: 20090205
  Transmission Date: 20100710
  Serious: Yes (Other)
  Sender: FDA-Public Use
  Company Number: A0768049A

PATIENT
  Age: 61 Year
  Sex: Female

DRUGS (1)
  1. WELLBUTRIN [Suspect]
     Dates: start: 20090101

REACTIONS (6)
  - AGGRESSION [None]
  - AGITATION [None]
  - HOT FLUSH [None]
  - HYPERHIDROSIS [None]
  - TINNITUS [None]
  - TREMOR [None]
